FAERS Safety Report 25889299 (Version 1)
Quarter: 2025Q4

REPORT INFORMATION
  Report Type: Spontaneous
  Country: EU (occurrence: EU)
  Receive Date: 20251007
  Receipt Date: 20251007
  Transmission Date: 20260117
  Serious: Yes (Hospitalization)
  Sender: CSL BEHRING
  Company Number: None

PATIENT
  Age: 73 Year
  Sex: Male

DRUGS (28)
  1. DIFELIKEFALIN ACETATE [Suspect]
     Active Substance: DIFELIKEFALIN ACETATE
     Indication: Chronic kidney disease-associated pruritus
     Dosage: 0,9 ML 3GGR/V
     Route: 065
     Dates: start: 20250901, end: 20250922
  2. VENOFER [Concomitant]
     Active Substance: IRON SUCROSE
     Indication: Product used for unknown indication
     Dosage: 5 ML, QW
     Route: 042
     Dates: start: 20250516
  3. AMLODIPINE [Concomitant]
     Active Substance: AMLODIPINE BESYLATE
     Dosage: 5 MG, BID (EVERY 12 HOURS)
     Route: 048
     Dates: start: 20240216
  4. PAROXETINE HYDROCHLORIDE [Concomitant]
     Active Substance: PAROXETINE HYDROCHLORIDE
     Dosage: 10 MG, QD
     Route: 048
     Dates: start: 20250719
  5. BENSERAZIDE HYDROCHLORIDE\LEVODOPA [Concomitant]
     Active Substance: BENSERAZIDE HYDROCHLORIDE\LEVODOPA
     Dosage: 1 DF, TID 1 SOLUBLE TABLET AT 08:00 A.M., 1 SOLUBLE TABLET AT 2:00 P.M. AND 1 SOLUBLE TABLET AT 10:0
     Route: 048
     Dates: start: 20250719
  6. UREA [Concomitant]
     Active Substance: UREA
     Dosage: 1 DF
     Route: 048
     Dates: start: 20180926
  7. Dentan mint [Concomitant]
     Dosage: 10 ML 1-2 TIMES DAILY
     Route: 048
     Dates: start: 20240904
  8. ERYTHROPOIETIN [Concomitant]
     Active Substance: ERYTHROPOIETIN
     Dosage: ACCORDING TO SCHEDULE
     Route: 058
     Dates: start: 20240525
  9. ALFACALCIDOL [Concomitant]
     Active Substance: ALFACALCIDOL
     Dosage: 0.25 ?G, QD
     Route: 048
     Dates: start: 20240418
  10. SEVELAMER [Concomitant]
     Active Substance: SEVELAMER
     Dosage: 1 TABLET AT 08:00 A.M., 2 TABLETS AT 12:00 P.M. AND 1 TABLET AT 05:00 P.M.
     Route: 048
     Dates: start: 20250902
  11. ENOXAPARIN [Concomitant]
     Active Substance: ENOXAPARIN
     Dosage: 0.5 - 1 MG/KG BODY WEIGHT INTRAVENOUSLY DURING DIALYSIS
     Route: 042
     Dates: start: 20230926
  12. ENALAPRIL [Concomitant]
     Active Substance: ENALAPRIL
     Dosage: 5 MG, QD
     Route: 048
     Dates: start: 20190117
  13. CYANOCOBALAMIN [Concomitant]
     Active Substance: CYANOCOBALAMIN
     Dosage: 1 MG, QD
     Route: 048
     Dates: start: 20201111
  14. SODIUM BICARBONATE [Concomitant]
     Active Substance: SODIUM BICARBONATE
     Dosage: 2 G, BID 2 TABLETS AT 08:00 A.M. AND 1 TABLET AT 05:00 P.M.
     Route: 048
     Dates: start: 20250719
  15. QUETIAPINE [Concomitant]
     Active Substance: QUETIAPINE
     Dosage: 1 TABLET AT 08:00 A.M. AND 4 TABLETS AT 08:00 P.M.
     Route: 048
     Dates: start: 20250911
  16. RESONIUM [Concomitant]
     Active Substance: SODIUM POLYSTYRENE SULFONATE
     Dosage: ACCORDING TO SCHEDULE
     Route: 048
     Dates: start: 20250624
  17. PROMETHAZINE HYDROCHLORIDE [Concomitant]
     Active Substance: PROMETHAZINE HYDROCHLORIDE
     Dosage: 1-2 TABLETS AS NEEDED, NO MORE THAN 6 TABLETS PER DAY
     Route: 048
     Dates: start: 20240523
  18. DOXAZOSIN [Concomitant]
     Active Substance: DOXAZOSIN MESYLATE
     Dosage: 4 MG, QD
     Route: 048
     Dates: start: 20250916
  19. LEVOTHYROXINE SODIUM [Concomitant]
     Active Substance: LEVOTHYROXINE SODIUM
     Dosage: 25 ?G, QD
     Route: 048
     Dates: start: 20250720
  20. INSULIN GLARGINE [Concomitant]
     Active Substance: INSULIN GLARGINE
     Dosage: 20 E KL 21 :00
     Route: 058
     Dates: start: 20250515
  21. Desloratadine glenmark [Concomitant]
     Dosage: 1 TABLET AS NEEDED 1-2 TIMES DAILY
     Route: 048
     Dates: start: 20250612
  22. INSULIN LISPRO [Concomitant]
     Active Substance: INSULIN LISPRO
     Dosage: AT P-GLUCOSE MORE THAN 12 MMOL/L GIVE 2 E INSULIN LISPRO EXTRA, MORE THAN 16 MMOL/I GIVE 4 E, MORE T
     Route: 058
     Dates: start: 20250220
  23. Temesta [Concomitant]
     Dosage: 1 MG, TID
     Route: 048
     Dates: start: 20250724
  24. Calcitugg [Concomitant]
     Dosage: 1 CHEWABLE TABLET AT 08:00 A.M. AND 1 CHEWABLE TABLET AT 05:00 P.M.
     Route: 048
     Dates: start: 20250902
  25. EMLA [Concomitant]
     Active Substance: LIDOCAINE\PRILOCAINE
     Dosage: 1 DF
     Route: 048
     Dates: start: 20231031
  26. MIRTAZAPINE [Concomitant]
     Active Substance: MIRTAZAPINE
     Dosage: 30 MG, QD
     Route: 048
     Dates: start: 20241001
  27. Furix [Concomitant]
     Dosage: 0.5-1 TABLET AT 08:00 A.M.
     Route: 048
     Dates: start: 20250604
  28. ELIQUIS [Concomitant]
     Active Substance: APIXABAN
     Dosage: 2.5 MG, BID
     Route: 048
     Dates: start: 20250523

REACTIONS (1)
  - Anxiety [Not Recovered/Not Resolved]

NARRATIVE: CASE EVENT DATE: 20250908
